FAERS Safety Report 9781135 (Version 2)
Quarter: 2013Q4

REPORT INFORMATION
  Report Type: Spontaneous
  Country: JP (occurrence: JP)
  Receive Date: 20131224
  Receipt Date: 20131230
  Transmission Date: 20140711
  Serious: Yes (Other)
  Sender: FDA-Public Use
  Company Number: JP-SA-2013SA133953

PATIENT
  Age: 40 Year
  Sex: Male

DRUGS (2)
  1. DOGMATYL [Suspect]
     Indication: DEPRESSION
     Route: 048
     Dates: start: 20131022, end: 20131125
  2. MYSLEE [Suspect]
     Indication: INSOMNIA
     Route: 048
     Dates: start: 20131022, end: 20131125

REACTIONS (2)
  - Theft [Recovered/Resolved]
  - Abnormal behaviour [Recovered/Resolved]
